FAERS Safety Report 11030757 (Version 4)
Quarter: 2015Q2

REPORT INFORMATION
  Report Type: Report from Study
  Country: US (occurrence: US)
  Receive Date: 20150415
  Receipt Date: 20150609
  Transmission Date: 20150821
  Serious: Yes (Other)
  Sender: FDA-Public Use
  Company Number: US-BAXTER-2015BAX019968

PATIENT
  Sex: Female

DRUGS (2)
  1. HYQVIA [Suspect]
     Active Substance: HUMAN IMMUNOGLOBULIN G\HYALURONIDASE RECOMBINANT HUMAN
     Indication: PRIMARY IMMUNODEFICIENCY SYNDROME
     Route: 058
  2. BOTOX [Concomitant]
     Active Substance: ONABOTULINUMTOXINA
     Indication: PRODUCT USED FOR UNKNOWN INDICATION
     Route: 065

REACTIONS (12)
  - Coital bleeding [Unknown]
  - Depression [Unknown]
  - Weight decreased [Unknown]
  - Nasopharyngitis [Unknown]
  - Kidney infection [Unknown]
  - Multiple allergies [Unknown]
  - Infection [Not Recovered/Not Resolved]
  - Medical device complication [Unknown]
  - Urinary tract infection [Unknown]
  - Haemorrhoids [Unknown]
  - Fungal infection [Unknown]
  - Asthma [Unknown]
